FAERS Safety Report 15155228 (Version 1)
Quarter: 2018Q3

REPORT INFORMATION
  Report Type: Spontaneous
  Country: IT (occurrence: IT)
  Receive Date: 20180717
  Receipt Date: 20180717
  Transmission Date: 20181010
  Serious: Yes (Hospitalization, Other)
  Sender: FDA-Public Use
  Company Number: IT-SA-2018SA182042

PATIENT
  Age: 82 Year
  Sex: Female

DRUGS (5)
  1. PLAVIX [Suspect]
     Active Substance: CLOPIDOGREL BISULFATE
     Indication: THROMBOSIS PROPHYLAXIS
     Dosage: 75 MG, QD
     Route: 048
     Dates: start: 20170101, end: 20171002
  2. CARDIOASPIRIN [Suspect]
     Active Substance: ASPIRIN
     Route: 048
     Dates: start: 20170101, end: 20171002
  3. LASIX [Concomitant]
     Active Substance: FUROSEMIDE
  4. ZYLORIC [Concomitant]
     Active Substance: ALLOPURINOL
  5. FULCRO [Concomitant]
     Active Substance: FENOFIBRATE

REACTIONS (3)
  - Subdural haematoma [Unknown]
  - Dysarthria [Unknown]
  - Nervous system disorder [Unknown]

NARRATIVE: CASE EVENT DATE: 20171002
